FAERS Safety Report 10680652 (Version 2)
Quarter: 2015Q4

REPORT INFORMATION
  Report Type: Spontaneous
  Country: US (occurrence: US)
  Receive Date: 20141229
  Receipt Date: 20151228
  Transmission Date: 20160304
  Serious: Yes (Other)
  Sender: FDA-Public Use
  Company Number: US-SA-2014SA118772

PATIENT
  Age: 67 Year
  Sex: Male

DRUGS (31)
  1. GLYCERYL TRINITRATE [Concomitant]
     Active Substance: NITROGLYCERIN
     Indication: CHEST PAIN
     Dosage: DISSOLVE ONE TABLET UNDER THE TONGUE EVERY 5 MINUTES FOR 3 DOSES AS , NEEDED
     Dates: start: 20000206, end: 20100901
  2. OMEPRAZOLE. [Concomitant]
     Active Substance: OMEPRAZOLE
     Indication: HYPERCHLORHYDRIA
     Route: 048
     Dates: start: 20000206
  3. CLOTRIMAZOLE. [Concomitant]
     Active Substance: CLOTRIMAZOLE
     Indication: IRRITABILITY
     Dates: start: 19991015, end: 20120422
  4. FOLIC ACID. [Concomitant]
     Active Substance: FOLIC ACID
     Indication: VITAMIN SUPPLEMENTATION
     Route: 048
     Dates: start: 20000222, end: 20130531
  5. PANTOPRAZOLE [Concomitant]
     Active Substance: PANTOPRAZOLE SODIUM
     Route: 042
     Dates: start: 20031213, end: 20031213
  6. ASPIRIN. [Concomitant]
     Active Substance: ASPIRIN
     Route: 048
     Dates: start: 2005, end: 2013
  7. FELODIPINE. [Concomitant]
     Active Substance: FELODIPINE
     Route: 048
     Dates: start: 20000206, end: 20120426
  8. PARACETAMOL/CODEINE [Concomitant]
     Indication: PAIN
     Dosage: TAKE 2 TABLETS BY MOUTH EVERY 4 HOURS AS NEEDED?STRENGTH: 60 MG
     Dates: start: 19991013, end: 20080705
  9. CLOTRIMAZOLE. [Concomitant]
     Active Substance: CLOTRIMAZOLE
     Indication: FUNGAL INFECTION
     Dates: start: 19991015, end: 20120422
  10. METOPROLOL TARTRATE. [Concomitant]
     Active Substance: METOPROLOL TARTRATE
     Indication: PROPHYLAXIS
     Route: 048
     Dates: start: 20000206, end: 20131010
  11. BRIMONIDINE TARTRATE. [Concomitant]
     Active Substance: BRIMONIDINE TARTRATE
     Indication: PROPHYLAXIS
     Dosage: OPHTHALMIC SOLUTION
     Dates: start: 20011116, end: 20040521
  12. LISINOPRIL. [Concomitant]
     Active Substance: LISINOPRIL
     Indication: PROPHYLAXIS
     Dosage: STRENGTH: 40 MG
     Route: 048
     Dates: start: 20020627, end: 20130127
  13. PLAVIX [Suspect]
     Active Substance: CLOPIDOGREL BISULFATE
     Indication: ACUTE CORONARY SYNDROME
     Route: 048
     Dates: start: 20000209, end: 20040426
  14. GEMFIBROZIL. [Concomitant]
     Active Substance: GEMFIBROZIL
     Indication: PROPHYLAXIS
     Dosage: 30 MINUTES BEFORE MEALS
     Route: 048
     Dates: start: 19990120, end: 20120427
  15. RABEPRAZOLE [Concomitant]
     Active Substance: RABEPRAZOLE
     Indication: PROPHYLAXIS
     Route: 048
     Dates: start: 20010827, end: 20040221
  16. LATANOPROST. [Concomitant]
     Active Substance: LATANOPROST
     Indication: PROPHYLAXIS
     Dosage: DROP
     Dates: start: 20031213, end: 20130907
  17. TERAZOSIN HYDROCHLORIDE. [Concomitant]
     Active Substance: TERAZOSIN HYDROCHLORIDE
     Dosage: TAKE ONE CAPSULE BY MOUTH AT BEDTIME FOR 14 DAYS, THEN TAKE TWO CAPSULES AT BEDTIME THEREAFTER
     Route: 048
     Dates: start: 20031103, end: 20100530
  18. ACETAMINOPHEN. [Concomitant]
     Active Substance: ACETAMINOPHEN
     Indication: PAIN
     Dosage: TAKE 2 TABLETS BY MOUTH EVERY 8 HOURS AS NEEDED?STRENGTHJ: 500 MG
     Route: 048
     Dates: start: 20000206, end: 20121201
  19. BISACODYL. [Concomitant]
     Active Substance: BISACODYL
     Indication: CONSTIPATION
     Dosage: TAKE ONE TABLET BY MOUTH TWICE A DAY AS NEEDED
     Route: 048
     Dates: start: 20000206, end: 20130601
  20. TESTOSTERONE. [Concomitant]
     Active Substance: TESTOSTERONE
     Indication: HORMONE REPLACEMENT THERAPY
     Dosage: INJECT 0.5CC (10 OMG) INTRAMUSCULARLY EVERY WEEK
     Route: 030
     Dates: start: 20000105, end: 20130601
  21. HYDROCODONE/PARACETAMOL [Concomitant]
     Indication: PAIN
     Dosage: EVERY 8 HOURS AS NEEDED
     Route: 048
     Dates: start: 20030701, end: 20121201
  22. PLAVIX [Suspect]
     Active Substance: CLOPIDOGREL BISULFATE
     Indication: PERIPHERAL ARTERIAL OCCLUSIVE DISEASE
     Route: 048
     Dates: start: 20000209, end: 20040426
  23. HEPARIN [Concomitant]
     Active Substance: HEPARIN SODIUM
     Route: 040
     Dates: start: 20000206, end: 20070508
  24. CHLORPHENIRAMINE. [Concomitant]
     Active Substance: CHLORPHENIRAMINE
     Indication: PRURITUS
     Dosage: TAKE ONE TO TWO TABLETS BY MOUTH AT BEDTIME AS NEEDED
     Route: 048
     Dates: start: 20000105, end: 20130124
  25. FOSINOPRIL [Concomitant]
     Active Substance: FOSINOPRIL
     Indication: PROPHYLAXIS
     Dosage: STRENGTH: 40 MG
     Route: 048
     Dates: start: 20031213, end: 20050227
  26. SODIUM CHLORIDE. [Concomitant]
     Active Substance: SODIUM CHLORIDE
     Dosage: STRENGTH: 09%
     Dates: start: 20031213, end: 20100719
  27. RANITIDINE [Concomitant]
     Active Substance: RANITIDINE\RANITIDINE HYDROCHLORIDE
     Indication: HYPERCHLORHYDRIA
     Dosage: STRENGTH: 150 MG
     Route: 048
     Dates: start: 20031213, end: 20110818
  28. SIMVASTATIN. [Concomitant]
     Active Substance: SIMVASTATIN
     Indication: PROPHYLAXIS
     Route: 048
     Dates: start: 19990120, end: 20120413
  29. MORPHINE [Concomitant]
     Active Substance: MORPHINE
     Indication: PROPHYLAXIS
     Dosage: 30 MG SR TAB TAKE ONE TABLET BY MOUTH TWICE A DAY AS NEEDED
     Route: 048
     Dates: start: 20000206, end: 20080126
  30. OMEPRAZOLE. [Concomitant]
     Active Substance: OMEPRAZOLE
     Indication: HYPERCHLORHYDRIA
     Route: 048
     Dates: end: 20130112
  31. MEPERIDINE [Concomitant]
     Active Substance: MEPERIDINE
     Route: 042
     Dates: start: 20031213, end: 20051216

REACTIONS (1)
  - Gastrointestinal haemorrhage [Recovered/Resolved]

NARRATIVE: CASE EVENT DATE: 20031213
